FAERS Safety Report 7207839-8 (Version None)
Quarter: 2010Q4

REPORT INFORMATION
  Report Type: 
  Country: None (occurrence: None)
  Receive Date: 20101221
  Receipt Date: 20101206
  Transmission Date: 20110411
  Serious: Yes (Other)
  Sender: FDA-Public Use
  Company Number: 1000017541

PATIENT
  Age: 60 Year
  Sex: Female

DRUGS (2)
  1. NEBIVOLOL HCL [Suspect]
     Indication: PERICARDITIS
     Dosage: 5 MG (5 MG, 1 IN 1 D), ORAL
     Route: 048
     Dates: start: 20100824
  2. ACETYLSALICYLIC ACID SRT [Concomitant]

REACTIONS (2)
  - DRUG HYPERSENSITIVITY [None]
  - OFF LABEL USE [None]
